FAERS Safety Report 12084965 (Version 1)
Quarter: 2016Q1

REPORT INFORMATION
  Report Type: Spontaneous
  Country: US (occurrence: US)
  Receive Date: 20160217
  Receipt Date: 20160217
  Transmission Date: 20160526
  Serious: No
  Sender: FDA-Public Use
  Company Number: US-PERRIGO-15US013680

PATIENT
  Age: 53 Year
  Sex: Female
  Weight: 47.62 kg

DRUGS (2)
  1. TRETINOIN. [Suspect]
     Active Substance: TRETINOIN
     Indication: SKIN WRINKLING
     Dosage: UNK, DAILY
     Route: 061
     Dates: start: 201505, end: 20150706
  2. TRETINOIN. [Suspect]
     Active Substance: TRETINOIN
     Dosage: UNK, DAILY
     Route: 061
     Dates: start: 20150710

REACTIONS (1)
  - Application site vesicles [Unknown]

NARRATIVE: CASE EVENT DATE: 20150706
